FAERS Safety Report 8438813-1 (Version None)
Quarter: 2012Q2

REPORT INFORMATION
  Report Type: 
  Country: None (occurrence: None)
  Receive Date: 20120608
  Receipt Date: 20120605
  Transmission Date: 20120825
  Serious: Yes (Hospitalization, Other)
  Sender: FDA-Public Use
  Company Number: 2010SP038548

PATIENT
  Age: 28 Year
  Sex: Female
  Weight: 74.8435 kg

DRUGS (1)
  1. NUVARING [Suspect]
     Indication: CONTRACEPTION
     Dates: start: 20070601, end: 20090105

REACTIONS (14)
  - CONDITION AGGRAVATED [None]
  - PREGNANCY [None]
  - HYPERLIPIDAEMIA [None]
  - BLOOD CHOLESTEROL INCREASED [None]
  - MULTIPLE INJURIES [None]
  - CHOLECYSTITIS CHRONIC [None]
  - CEREBRAL THROMBOSIS [None]
  - HYPERCOAGULATION [None]
  - CEREBROVASCULAR ACCIDENT [None]
  - SUBSTANCE USE [None]
  - UMBILICAL HERNIA [None]
  - MATERNAL EXPOSURE BEFORE PREGNANCY [None]
  - GASTROOESOPHAGEAL REFLUX DISEASE [None]
  - METRORRHAGIA [None]
